FAERS Safety Report 10722472 (Version 1)
Quarter: 2015Q1

REPORT INFORMATION
  Report Type: Spontaneous
  Country: US (occurrence: US)
  Receive Date: 20150119
  Receipt Date: 20150119
  Transmission Date: 20150721
  Serious: No
  Sender: FDA-Public Use
  Company Number: US-BAUSCH-SYM-2014-20245

PATIENT
  Age: 37 Year
  Sex: Male

DRUGS (1)
  1. TESTRED [Suspect]
     Active Substance: METHYLTESTOSTERONE
     Indication: SUPPLEMENTATION THERAPY
     Route: 048
     Dates: start: 201404, end: 20140424

REACTIONS (1)
  - Gynaecomastia [Not Recovered/Not Resolved]

NARRATIVE: CASE EVENT DATE: 201404
